FAERS Safety Report 17961716 (Version 1)
Quarter: 2020Q2

REPORT INFORMATION
  Report Type: Spontaneous
  Country: US (occurrence: US)
  Receive Date: 20200629
  Receipt Date: 20200629
  Transmission Date: 20200714
  Serious: Yes (Hospitalization)
  Sender: FDA-Public Use
  Company Number: None

PATIENT
  Age: 54 Year
  Sex: Male
  Weight: 102.51 kg

DRUGS (2)
  1. CLOZAPINE (MYLAN) CLOZAPINE (MYLAN) 200MG TAB [Suspect]
     Active Substance: CLOZAPINE
     Indication: SCHIZOPHRENIA
     Dates: start: 20030822, end: 20200205
  2. OXYBUTYNIN. [Suspect]
     Active Substance: OXYBUTYNIN CHLORIDE
     Indication: URINARY INCONTINENCE
     Route: 048
     Dates: start: 20031126, end: 20200205

REACTIONS (5)
  - Seizure [None]
  - Sepsis [None]
  - Constipation [None]
  - Acute kidney injury [None]
  - Intestinal pseudo-obstruction [None]

NARRATIVE: CASE EVENT DATE: 20200205
